FAERS Safety Report 19403736 (Version 1)
Quarter: 2021Q2

REPORT INFORMATION
  Report Type: Spontaneous
  Country: FR (occurrence: FR)
  Receive Date: 20210611
  Receipt Date: 20210611
  Transmission Date: 20210717
  Serious: Yes (Other)
  Sender: FDA-Public Use
  Company Number: FR-ASTRAZENECA-2021A506991

PATIENT
  Age: 65 Year
  Sex: Female

DRUGS (3)
  1. CHEMOTHERAPY [Concomitant]
     Active Substance: UNSPECIFIED INGREDIENT
  2. IMFINZI [Suspect]
     Active Substance: DURVALUMAB
     Indication: SMALL CELL LUNG CANCER METASTATIC
     Route: 042
  3. IMFINZI [Suspect]
     Active Substance: DURVALUMAB
     Indication: SMALL CELL LUNG CANCER METASTATIC
     Route: 042

REACTIONS (4)
  - Hepatitis [Not Recovered/Not Resolved]
  - Malignant neoplasm progression [Unknown]
  - Diabetes mellitus [Not Recovered/Not Resolved]
  - Thyroiditis [Not Recovered/Not Resolved]
